FAERS Safety Report 5871394-5 (Version None)
Quarter: 2008Q3

REPORT INFORMATION
  Report Type: 
  Country: None (occurrence: None)
  Receive Date: 20080905
  Receipt Date: 20080312
  Transmission Date: 20090109
  Serious: No
  Sender: FDA-Public Use
  Company Number: A0603403A

PATIENT
  Age: 72 Year
  Sex: Female

DRUGS (2)
  1. REQUIP [Suspect]
     Indication: RESTLESS LEGS SYNDROME
     Dosage: 25MG PER DAY
     Route: 048
     Dates: start: 20060421
  2. THYROID MEDICATION [Concomitant]

REACTIONS (4)
  - DRUG EFFECT DECREASED [None]
  - INAPPROPRIATE SCHEDULE OF DRUG ADMINISTRATION [None]
  - INSOMNIA [None]
  - MIDDLE INSOMNIA [None]
